FAERS Safety Report 5113455-4 (Version None)
Quarter: 2006Q3

REPORT INFORMATION
  Report Type: 
  Country: None (occurrence: None)
  Receive Date: 20060920
  Receipt Date: 20060906
  Transmission Date: 20061208
  Serious: Yes (Other)
  Sender: FDA-Public Use
  Company Number: FABR-11624

PATIENT
  Age: 18 Year
  Sex: Male
  Weight: 61.2 kg

DRUGS (3)
  1. FABRAZYME [Suspect]
     Indication: FABRY'S DISEASE
     Dosage: 1 MG/KG Q2WKS IV
     Route: 042
     Dates: start: 20041201, end: 20050801
  2. IBUPROFEN [Concomitant]
  3. DIPHENHYDRAMINE HCL [Concomitant]

REACTIONS (6)
  - ERYTHEMA [None]
  - INFUSION SITE REACTION [None]
  - LEUKOCYTOCLASTIC VASCULITIS [None]
  - SKIN LESION [None]
  - SKIN NECROSIS [None]
  - VIRAL UPPER RESPIRATORY TRACT INFECTION [None]
